FAERS Safety Report 17076064 (Version 3)
Quarter: 2019Q4

REPORT INFORMATION
  Report Type: Report from Study
  Country: IN (occurrence: IN)
  Receive Date: 20191126
  Receipt Date: 20191218
  Transmission Date: 20200122
  Serious: Yes (Other)
  Sender: FDA-Public Use
  Company Number: PHHY2019IN014413

PATIENT
  Age: 33 Year
  Sex: Male
  Weight: 74 kg

DRUGS (3)
  1. RAMISTAR [Concomitant]
     Active Substance: RAMIPRIL
     Indication: PRODUCT USED FOR UNKNOWN INDICATION
     Dosage: 1 DF, QD (2.5 UNITS NOT PROVIDED)
     Route: 048
  2. ROSUVAS F [Concomitant]
     Indication: PRODUCT USED FOR UNKNOWN INDICATION
     Dosage: 1 DF, QD
     Route: 048
  3. GALVUS MET [Suspect]
     Active Substance: METFORMIN HYDROCHLORIDE\VILDAGLIPTIN
     Indication: PRODUCT USED FOR UNKNOWN INDICATION
     Dosage: 1 DF, BID (METFORMIN 500MG, VILDAGLIPTIN 50MG)
     Route: 048

REACTIONS (4)
  - Hyperglycaemia [Recovered/Resolved]
  - Hyperglycaemia [Recovered/Resolved]
  - Glycosylated haemoglobin increased [Unknown]
  - Malaise [Unknown]

NARRATIVE: CASE EVENT DATE: 20181223
